FAERS Safety Report 9793006 (Version 7)
Quarter: 2014Q3

REPORT INFORMATION
  Report Type: Spontaneous
  Country: US (occurrence: US)
  Receive Date: 20140102
  Receipt Date: 20140912
  Transmission Date: 20150326
  Serious: Yes (Hospitalization, Other)
  Sender: FDA-Public Use
  Company Number: US-009507513-1312USA011682

PATIENT
  Sex: Female
  Weight: 43.84 kg

DRUGS (5)
  1. FOSAMAX [Suspect]
     Active Substance: ALENDRONATE SODIUM
     Dosage: 10 MG, QD
     Route: 048
     Dates: start: 19970814
  2. FOSAMAX [Suspect]
     Active Substance: ALENDRONATE SODIUM
     Indication: OSTEOPOROSIS
     Dosage: 70 MG, QW
     Route: 048
     Dates: start: 20001217, end: 20120525
  3. ALENDRONATE SODIUM. [Suspect]
     Active Substance: ALENDRONATE SODIUM
     Indication: OSTEOPOROSIS
     Dosage: 70 MG, QW
     Dates: start: 2000, end: 2012
  4. ALENDRONATE SODIUM. [Suspect]
     Active Substance: ALENDRONATE SODIUM
     Indication: OSTEOPENIA
  5. FOSAMAX [Suspect]
     Active Substance: ALENDRONATE SODIUM
     Dosage: 70 MG, QW
     Route: 048
     Dates: start: 20020319, end: 20121203

REACTIONS (37)
  - Osteoarthritis [Unknown]
  - Joint instability [Unknown]
  - Polypectomy [Unknown]
  - Limb injury [Unknown]
  - Hypercholesterolaemia [Unknown]
  - Surgery [Unknown]
  - Cerumen impaction [Unknown]
  - Osteosclerosis [Unknown]
  - Renal failure chronic [Unknown]
  - Adverse event [Unknown]
  - Hypertension [Unknown]
  - Fluid intake reduced [Unknown]
  - Haematoma [Unknown]
  - Basal cell carcinoma [Unknown]
  - Low turnover osteopathy [Unknown]
  - Large intestine benign neoplasm [Unknown]
  - Arthropathy [Unknown]
  - Anaemia postoperative [Unknown]
  - Tendon discomfort [Unknown]
  - Fracture [Unknown]
  - Constipation [Unknown]
  - Femur fracture [Unknown]
  - Transplant [Unknown]
  - Arthritis [Unknown]
  - Tendon transfer [Unknown]
  - Migraine [Unknown]
  - Bursitis [Unknown]
  - Intramedullary rod insertion [Unknown]
  - Renal impairment [Unknown]
  - Nephrolithiasis [Unknown]
  - Postmenopausal haemorrhage [Unknown]
  - Arthrodesis [Unknown]
  - Joint arthroplasty [Unknown]
  - Femur fracture [Unknown]
  - Tendonitis [Unknown]
  - Intervertebral disc protrusion [Unknown]
  - Atrophic vulvovaginitis [Unknown]

NARRATIVE: CASE EVENT DATE: 200204
